FAERS Safety Report 9336994 (Version 1)
Quarter: 2013Q2

REPORT INFORMATION
  Report Type: Spontaneous
  Country: CA (occurrence: CA)
  Receive Date: 20130607
  Receipt Date: 20130607
  Transmission Date: 20140414
  Serious: Yes (Other)
  Sender: FDA-Public Use
  Company Number: CA-TEVA-410535USA

PATIENT
  Age: 11 Year
  Sex: Female

DRUGS (1)
  1. CLARITHROMYCIN [Suspect]
     Route: 065

REACTIONS (4)
  - Tonsillitis [Unknown]
  - Condition aggravated [Unknown]
  - Rash [Unknown]
  - Otitis media [Unknown]
